FAERS Safety Report 7979192-3 (Version None)
Quarter: 2011Q4

REPORT INFORMATION
  Report Type: 
  Country: None (occurrence: None)
  Receive Date: 20111214
  Receipt Date: 20111209
  Transmission Date: 20120403
  Serious: Yes (Death, Hospitalization, Other)
  Sender: FDA-Public Use
  Company Number: JP-JNJFOC-20090908252

PATIENT
  Sex: Female
  Weight: 52 kg

DRUGS (33)
  1. DOXORUBICIN HCL [Suspect]
     Indication: OVARIAN CANCER RECURRENT
     Dosage: CYCLE 6
     Route: 042
     Dates: start: 20091013, end: 20091013
  2. DOXORUBICIN HCL [Suspect]
     Dosage: CYCLE 5
     Route: 042
     Dates: start: 20090902, end: 20090902
  3. DOXORUBICIN HCL [Suspect]
     Dosage: CYCLE 3
     Route: 042
     Dates: start: 20090626, end: 20090626
  4. DOXORUBICIN HCL [Suspect]
     Dosage: CYCLE 11
     Route: 042
     Dates: start: 20100301, end: 20100301
  5. GEMZAR [Suspect]
     Indication: OVARIAN CANCER RECURRENT
     Route: 041
     Dates: start: 20081029, end: 20101013
  6. NEUTROGIN [Concomitant]
     Indication: WHITE BLOOD CELL COUNT DECREASED
     Route: 058
     Dates: start: 20090519, end: 20090521
  7. TPN [Concomitant]
     Route: 041
     Dates: start: 20090907, end: 20090916
  8. PRIMPERAN TAB [Concomitant]
     Indication: INTESTINAL OBSTRUCTION
     Route: 042
     Dates: start: 20090907, end: 20090916
  9. PRIMPERAN TAB [Concomitant]
     Route: 042
     Dates: start: 20091006, end: 20091014
  10. DOXORUBICIN HCL [Suspect]
     Dosage: CYCLE 4
     Route: 042
     Dates: start: 20090805, end: 20090805
  11. GASMOTIN [Concomitant]
     Indication: GASTROINTESTINAL MOTILITY DISORDER
     Route: 048
     Dates: start: 20090724, end: 20101017
  12. MOTILIUM [Concomitant]
     Indication: DECREASED APPETITE
     Route: 048
     Dates: start: 20090724, end: 20101017
  13. DOXORUBICIN HCL [Suspect]
     Dosage: CYCLE 7
     Route: 042
     Dates: start: 20091101, end: 20091101
  14. DOXORUBICIN HCL [Suspect]
     Dosage: CYCLE 8
     Route: 042
     Dates: start: 20091201, end: 20091201
  15. DOXORUBICIN HCL [Suspect]
     Dosage: CYCLE 9
     Route: 042
     Dates: start: 20100101, end: 20100101
  16. DOXORUBICIN HCL [Suspect]
     Route: 042
     Dates: start: 20090428, end: 20090428
  17. OXALIPLATIN [Suspect]
     Indication: OVARIAN CANCER RECURRENT
     Route: 041
     Dates: start: 20081001, end: 20101013
  18. TPN [Concomitant]
     Route: 041
     Dates: start: 20090718, end: 20090727
  19. CONCENTRATED HUMAN RED BLOOD CELLS [Concomitant]
     Route: 042
     Dates: start: 20090618, end: 20090618
  20. CELECOXIB [Concomitant]
     Indication: CANCER PAIN
     Route: 048
     Dates: start: 20080416, end: 20101017
  21. DAI-KENCHU-TO [Concomitant]
     Indication: GASTROINTESTINAL MOTILITY DISORDER
     Dosage: 3 DF
     Route: 048
     Dates: start: 20090724, end: 20101017
  22. DACARBAZINE [Concomitant]
     Indication: OVARIAN CANCER RECURRENT
     Route: 042
     Dates: start: 20100203, end: 20101013
  23. DOXORUBICIN HCL [Suspect]
     Dosage: CYCLE 10
     Route: 042
     Dates: start: 20100201, end: 20100201
  24. CONCENTRATED HUMAN RED BLOOD CELLS [Concomitant]
     Indication: ANAEMIA
     Route: 042
     Dates: start: 20090618, end: 20090618
  25. CONCENTRATED HUMAN RED BLOOD CELLS [Concomitant]
     Route: 042
     Dates: start: 20091030, end: 20091030
  26. PRIMPERAN TAB [Concomitant]
     Route: 042
     Dates: start: 20090718, end: 20090727
  27. MOTILIUM [Concomitant]
     Indication: GASTROINTESTINAL MOTILITY DISORDER
     Route: 048
     Dates: start: 20090724, end: 20101017
  28. PYDOXAL [Concomitant]
     Indication: PROPHYLAXIS
     Route: 048
     Dates: start: 20090426, end: 20101017
  29. TPN [Concomitant]
     Indication: INTESTINAL OBSTRUCTION
     Route: 041
     Dates: start: 20091006, end: 20091014
  30. DOXORUBICIN HCL [Suspect]
     Route: 042
     Dates: start: 20090527, end: 20090527
  31. DOXORUBICIN HCL [Suspect]
     Dosage: CYCLE 12
     Route: 042
     Dates: start: 20100301, end: 20100301
  32. CONCENTRATED HUMAN RED BLOOD CELLS [Concomitant]
     Indication: ERYTHROPENIA
     Route: 042
     Dates: start: 20091030, end: 20091030
  33. LANSOPRAZOLE [Concomitant]
     Indication: GASTROOESOPHAGEAL REFLUX DISEASE
     Route: 048
     Dates: start: 20080416, end: 20101017

REACTIONS (6)
  - OVARIAN CANCER [None]
  - WHITE BLOOD CELL COUNT DECREASED [None]
  - PLATELET COUNT DECREASED [None]
  - INTESTINAL OBSTRUCTION [None]
  - ANAEMIA [None]
  - ERYTHROPENIA [None]
